FAERS Safety Report 18546589 (Version 1)
Quarter: 2020Q4

REPORT INFORMATION
  Report Type: Spontaneous
  Country: PL (occurrence: PL)
  Receive Date: 20201125
  Receipt Date: 20201125
  Transmission Date: 20210114
  Serious: Yes (Other)
  Sender: FDA-Public Use
  Company Number: PL-ABBVIE-20K-129-3666570-00

PATIENT
  Age: 67 Year
  Sex: Male

DRUGS (3)
  1. VENETOCLAX. [Concomitant]
     Active Substance: VENETOCLAX
     Indication: PRODUCT USED FOR UNKNOWN INDICATION
     Dates: start: 20201019
  2. RITUXIMAB. [Concomitant]
     Active Substance: RITUXIMAB
     Indication: PRODUCT USED FOR UNKNOWN INDICATION
     Dates: start: 20201019
  3. IMBRUVICA [Suspect]
     Active Substance: IBRUTINIB
     Indication: CHRONIC LYMPHOCYTIC LEUKAEMIA
     Route: 048
     Dates: start: 201907, end: 20201026

REACTIONS (3)
  - Lymphadenopathy [Unknown]
  - Blood lactate dehydrogenase increased [Unknown]
  - Splenomegaly [Unknown]

NARRATIVE: CASE EVENT DATE: 202010
